FAERS Safety Report 9296925 (Version 1)
Quarter: 2013Q2

REPORT INFORMATION
  Report Type: Report from Study
  Country: GB (occurrence: GB)
  Receive Date: 20130518
  Receipt Date: 20130518
  Transmission Date: 20140414
  Serious: Yes (Hospitalization)
  Sender: FDA-Public Use
  Company Number: GB-ROCHE-1225369

PATIENT
  Sex: Male

DRUGS (3)
  1. RITUXIMAB [Suspect]
     Indication: RHEUMATOID ARTHRITIS
     Route: 065
     Dates: start: 20100722, end: 20120503
  2. CYCLOSPORIN [Concomitant]
  3. SULPHASALAZINE [Concomitant]

REACTIONS (2)
  - Abdominal pain upper [Unknown]
  - Gastrointestinal inflammation [Unknown]
